FAERS Safety Report 17468876 (Version 1)
Quarter: 2020Q1

REPORT INFORMATION
  Report Type: Spontaneous
  Country: US (occurrence: US)
  Receive Date: 20200227
  Receipt Date: 20200227
  Transmission Date: 20200409
  Serious: Yes (Death)
  Sender: FDA-Public Use
  Company Number: None

PATIENT
  Age: 60 Year
  Sex: Male

DRUGS (5)
  1. VITAMIN D2 [Concomitant]
     Active Substance: ERGOCALCIFEROL
  2. PROLIA [Suspect]
     Active Substance: DENOSUMAB
     Indication: OSTEOPOROSIS
     Dosage: ?          OTHER FREQUENCY:EVERY 6 MONTHS;?
     Route: 058
  3. IBUPROFEN. [Concomitant]
     Active Substance: IBUPROFEN
  4. AMLODIPINE [Concomitant]
     Active Substance: AMLODIPINE BESYLATE
  5. CARVEDIOL [Concomitant]
     Active Substance: CARVEDILOL

REACTIONS (1)
  - Death [None]

NARRATIVE: CASE EVENT DATE: 20200226
